FAERS Safety Report 25856381 (Version 1)
Quarter: 2025Q3

REPORT INFORMATION
  Report Type: Report from Study
  Country: IN (occurrence: IN)
  Receive Date: 20250928
  Receipt Date: 20250928
  Transmission Date: 20251020
  Serious: Yes (Death)
  Sender: ALEXION PHARMACEUTICALS
  Company Number: IN-AstraZeneca-CH-00958434A

PATIENT
  Sex: Female
  Weight: 40 kg

DRUGS (1)
  1. DURVALUMAB [Suspect]
     Active Substance: DURVALUMAB
     Indication: Biliary tract disorder

REACTIONS (4)
  - Coma [Fatal]
  - Asthenia [Fatal]
  - Dizziness [Fatal]
  - General physical health deterioration [Fatal]
